FAERS Safety Report 21336500 (Version 2)
Quarter: 2022Q4

REPORT INFORMATION
  Report Type: Spontaneous
  Country: US (occurrence: US)
  Receive Date: 20220915
  Receipt Date: 20221014
  Transmission Date: 20230112
  Serious: No
  Sender: FDA-Public Use
  Company Number: US-BRISTOL-MYERS SQUIBB COMPANY-2022-106607

PATIENT
  Age: 70 Year
  Sex: Female
  Weight: 67.0 kg

DRUGS (2)
  1. REVLIMID [Suspect]
     Active Substance: LENALIDOMIDE
     Indication: Plasma cell myeloma
     Dosage: FREQUENCY: DAILY DAYS 1-21, EVERY 28 DAYS?ONGOING
     Route: 048
     Dates: start: 20201101
  2. REVLIMID [Suspect]
     Active Substance: LENALIDOMIDE
     Indication: Plasma cell myeloma in remission
     Dosage: 1 CAPSULE BY MOUTH DAYS 1-21, THEN 7 ?DAYS OFF. REPEAT CYCLE
     Route: 048
     Dates: start: 20220820

REACTIONS (1)
  - Urinary tract infection [Recovered/Resolved]
